FAERS Safety Report 5572287-3 (Version None)
Quarter: 2007Q4

REPORT INFORMATION
  Report Type: 
  Country: None (occurrence: None)
  Receive Date: 20071221
  Receipt Date: 20071211
  Transmission Date: 20080405
  Serious: Yes (Hospitalization)
  Sender: FDA-Public Use
  Company Number: PT-PFIZER INC-2007104736

PATIENT
  Sex: Female
  Weight: 60 kg

DRUGS (3)
  1. LYRICA [Suspect]
     Indication: RADICULOPATHY
     Dosage: DAILY DOSE:75MG
     Route: 048
     Dates: start: 20070908, end: 20070916
  2. CHONDROITIN SULFATE SODIUM [Suspect]
     Indication: OSTEOARTHRITIS
     Dosage: DAILY DOSE:1000MG
     Route: 048
     Dates: start: 20070908, end: 20070916
  3. ACETAMINOPHEN [Concomitant]
     Route: 048

REACTIONS (1)
  - HEPATITIS [None]
